FAERS Safety Report 9779451 (Version 1)
Quarter: 2013Q4

REPORT INFORMATION
  Report Type: Spontaneous
  Country: GB (occurrence: GB)
  Receive Date: 20131223
  Receipt Date: 20131223
  Transmission Date: 20140711
  Serious: Yes (Other)
  Sender: FDA-Public Use
  Company Number: GB-PFIZER INC-2013364549

PATIENT
  Sex: Male

DRUGS (1)
  1. AXITINIB [Suspect]
     Dosage: 5 MG OR 7 MG

REACTIONS (1)
  - Pneumonia [Unknown]
